FAERS Safety Report 5595566-2 (Version None)
Quarter: 2008Q1

REPORT INFORMATION
  Report Type: 
  Country: None (occurrence: None)
  Receive Date: 20080118
  Receipt Date: 20080109
  Transmission Date: 20080703
  Serious: Yes (Other)
  Sender: FDA-Public Use
  Company Number: PHBS2008US00929

PATIENT
  Age: 29 Year
  Sex: Female

DRUGS (3)
  1. TRASTUZUMAB [Suspect]
     Indication: METASTASIS
     Dosage: UNK, UNK
     Dates: start: 20050501
  2. VINORELBINE [Suspect]
     Indication: METASTASIS
     Dates: start: 20050501
  3. ZOLEDRONIC ACID [Suspect]
     Indication: METASTASIS
     Dates: start: 20050501

REACTIONS (2)
  - ABORTION INDUCED [None]
  - DRUG EXPOSURE DURING PREGNANCY [None]
